FAERS Safety Report 7469142-0 (Version None)
Quarter: 2011Q2

REPORT INFORMATION
  Report Type: 
  Country: None (occurrence: None)
  Receive Date: 20110510
  Receipt Date: 20110406
  Transmission Date: 20111010
  Serious: Yes (Hospitalization, Other)
  Sender: FDA-Public Use
  Company Number: US-BAYER-201014511NA

PATIENT
  Age: 37 Year
  Sex: Female
  Weight: 119.73 kg

DRUGS (7)
  1. METFORMIN HCL [Concomitant]
     Indication: TYPE 2 DIABETES MELLITUS
  2. YASMIN [Suspect]
     Indication: PRODUCT USED FOR UNKNOWN INDICATION
     Dosage: UNK
     Route: 048
     Dates: start: 20040701, end: 20050201
  3. DIOVAN [Concomitant]
  4. YASMIN [Suspect]
     Dosage: UNK
     Dates: start: 20050901, end: 20060301
  5. DROSPIRENONE AND ETHINYL ESTRADIOL [Suspect]
     Indication: PRODUCT USED FOR UNKNOWN INDICATION
     Dosage: UNK
     Route: 048
     Dates: start: 20081201, end: 20090915
  6. LISINOPRIL [Concomitant]
     Dosage: UNK
     Dates: start: 20090901, end: 20091101
  7. ANGIOTENSIN II ANTAGONISTS [Concomitant]

REACTIONS (4)
  - PULMONARY HYPERTENSION [None]
  - EMBOLISM VENOUS [None]
  - DILATATION VENTRICULAR [None]
  - PULMONARY EMBOLISM [None]
